FAERS Safety Report 5403033-1 (Version None)
Quarter: 2007Q3

REPORT INFORMATION
  Report Type: 
  Country: None (occurrence: None)
  Receive Date: 20070718
  Receipt Date: 20060908
  Transmission Date: 20080115
  Serious: Yes (Hospitalization)
  Sender: FDA-Public Use
  Company Number: 2006111408

PATIENT
  Sex: Female

DRUGS (2)
  1. CELEBREX [Suspect]
     Dates: start: 20010608, end: 20020304
  2. VIOXX [Suspect]
     Dates: start: 20020304

REACTIONS (1)
  - CEREBROVASCULAR ACCIDENT [None]
